FAERS Safety Report 12620174 (Version 4)
Quarter: 2016Q4

REPORT INFORMATION
  Report Type: Spontaneous
  Country: US (occurrence: US)
  Receive Date: 20160803
  Receipt Date: 20161222
  Transmission Date: 20170207
  Serious: Yes (Hospitalization, Other)
  Sender: FDA-Public Use
  Company Number: US-SAOL THERAPEUTICS-2016SAO00281

PATIENT
  Age: 43 Year
  Sex: Female
  Weight: 63.95 kg

DRUGS (26)
  1. BACLOFEN COMPOUNDED [Suspect]
     Active Substance: BACLOFEN
     Dosage: 0.5758 MG/DAY
     Route: 037
  2. BACLOFEN. [Suspect]
     Active Substance: BACLOFEN
     Indication: PAIN
     Dosage: 0.6559 ?G, \DAY
     Dates: start: 20131118
  3. BACLOFEN. [Suspect]
     Active Substance: BACLOFEN
     Indication: SPINAL PAIN
     Dosage: 0.416 MG, \DAY
  4. DIAZEPAM. [Suspect]
     Active Substance: DIAZEPAM
  5. TOPAMAX [Suspect]
     Active Substance: TOPIRAMATE
  6. DILANTIN [Concomitant]
     Active Substance: PHENYTOIN
  7. HYDROMORPHONE [Suspect]
     Active Substance: HYDROMORPHONE
     Dosage: 1.822 MG, \DAY
  8. IMITREX [Suspect]
     Active Substance: SUMATRIPTAN SUCCINATE
  9. LAMICTAL [Concomitant]
     Active Substance: LAMOTRIGINE
  10. BACLOFEN. [Suspect]
     Active Substance: BACLOFEN
     Indication: POST LAMINECTOMY SYNDROME
     Dosage: 0.64 MG, \DAY
     Dates: end: 20131118
  11. FENTANYL. [Suspect]
     Active Substance: FENTANYL
     Dosage: 9.7 MG, \DAY
  12. CLONIDINE. [Suspect]
     Active Substance: CLONIDINE
     Dosage: 0.064 MG, \DAY
     Route: 037
     Dates: end: 20131118
  13. MIRTAZAPINE. [Concomitant]
     Active Substance: MIRTAZAPINE
  14. BACLOFEN. [Suspect]
     Active Substance: BACLOFEN
     Indication: SPINAL PAIN
  15. FENTANYL. [Suspect]
     Active Substance: FENTANYL
     Dosage: 8.0 MG, \DAY
     Dates: end: 20131118
  16. FENTANYL. [Suspect]
     Active Substance: FENTANYL
     Dosage: 8.199 UNK, UNK
     Dates: start: 20131118
  17. FENTANYL. [Suspect]
     Active Substance: FENTANYL
     Dosage: 6.508 MG, \DAY
  18. CYMBALTA [Suspect]
     Active Substance: DULOXETINE HYDROCHLORIDE
  19. ESTRADIOL. [Suspect]
     Active Substance: ESTRADIOL
  20. DILAUDID [Suspect]
     Active Substance: HYDROMORPHONE HYDROCHLORIDE
     Dosage: 2.912 MG, \DAY
     Route: 037
     Dates: end: 20131118
  21. CLONIDINE. [Suspect]
     Active Substance: CLONIDINE
     Dosage: 0.065 MG, \DAY
     Dates: start: 20131118
  22. NORCO [Suspect]
     Active Substance: ACETAMINOPHEN\HYDROCODONE BITARTRATE
  23. ZOFRAN [Suspect]
     Active Substance: ONDANSETRON HYDROCHLORIDE
  24. CLONIDINE. [Suspect]
     Active Substance: CLONIDINE
     Dosage: 33.84 ?G, \DAY
     Route: 037
  25. DILAUDID [Suspect]
     Active Substance: HYDROMORPHONE HYDROCHLORIDE
     Dosage: 2.984 MG, \DAY
     Dates: start: 20131118
  26. VIMPAT [Concomitant]
     Active Substance: LACOSAMIDE

REACTIONS (16)
  - Nausea [Recovered/Resolved]
  - Medical device discomfort [Not Recovered/Not Resolved]
  - Drug administration error [Recovered/Resolved]
  - Infusion site mass [Recovered/Resolved]
  - Feeling of body temperature change [Recovered/Resolved]
  - Drug withdrawal syndrome [Recovered/Resolved]
  - Seizure [Recovered/Resolved]
  - Swelling [Recovered/Resolved]
  - Arthralgia [Not Recovered/Not Resolved]
  - Memory impairment [Recovered/Resolved]
  - Abdominal discomfort [Recovered/Resolved]
  - Tinnitus [Unknown]
  - Pain [Recovered/Resolved]
  - Oedema [Recovered/Resolved]
  - Diarrhoea [Recovered/Resolved]
  - Off label use [Unknown]

NARRATIVE: CASE EVENT DATE: 201311
